FAERS Safety Report 7835430-9 (Version None)
Quarter: 2011Q4

REPORT INFORMATION
  Report Type: 
  Country: None (occurrence: None)
  Receive Date: 20111024
  Receipt Date: 20111020
  Transmission Date: 20120403
  Serious: Yes (Death, Other)
  Sender: FDA-Public Use
  Company Number: NL-ASTRAZENECA-2011SE63335

PATIENT
  Age: 90 Year
  Sex: Male
  Weight: 81 kg

DRUGS (19)
  1. ISORDIL [Concomitant]
     Route: 048
  2. METOPROLOL TARTRATE [Interacting]
     Route: 048
     Dates: start: 20110105
  3. BUMETANIDE [Interacting]
     Route: 048
     Dates: start: 20110907
  4. CLOPIDOGREL (HCL) [Concomitant]
     Route: 048
  5. SINTROM [Concomitant]
     Route: 048
  6. VERAPAMIL HCL [Interacting]
     Indication: TACHYCARDIA
     Route: 048
  7. ALFACALCIDOL [Concomitant]
     Route: 048
  8. AMOXICILLINE/CLAVULAANZUUR [Concomitant]
     Dosage: 500/125 MG THREE TIMES A DAY
     Route: 048
  9. VERAPAMIL HCL [Interacting]
     Route: 048
     Dates: start: 20110907
  10. BETADINE [Concomitant]
     Dosage: 100 MG/ML TWO TIMES DAILY
     Route: 003
  11. HYDROCOBAMINE [Concomitant]
     Dosage: 500 MCG/ML AMPUL 2 ML
     Route: 030
  12. BUMETANIDE [Interacting]
     Indication: CARDIAC FAILURE CONGESTIVE
     Route: 048
  13. METOPROLOL TARTRATE [Suspect]
     Indication: TACHYCARDIA
     Route: 048
  14. METOPROLOL TARTRATE [Interacting]
     Route: 048
     Dates: start: 20110907
  15. FERROFUMARAAT [Concomitant]
     Route: 048
  16. MELATONINE [Concomitant]
     Route: 048
  17. METFORMIN HCL [Concomitant]
     Route: 048
  18. PANTOPRAZOLE [Concomitant]
     Route: 048
  19. NOVOLOG MIX 70/30 [Concomitant]
     Dosage: 100E/ML WWSP 3ML
     Route: 058

REACTIONS (2)
  - DRUG INTERACTION [None]
  - SHOCK [None]
